FAERS Safety Report 20776640 (Version 1)
Quarter: 2022Q2

REPORT INFORMATION
  Report Type: Spontaneous
  Country: US (occurrence: US)
  Receive Date: 20220502
  Receipt Date: 20220502
  Transmission Date: 20220721
  Serious: No
  Sender: FDA-Public Use
  Company Number: US-PFIZER INC-202101000873

PATIENT
  Age: 27 Year
  Sex: Female
  Weight: 85.73 kg

DRUGS (1)
  1. DOXYCYCLINE HYCLATE [Suspect]
     Active Substance: DOXYCYCLINE HYCLATE
     Dosage: 100 MG, 2X/DAY (ONE CAPSULE BY MOUTH EVERY 12 HOURS)
     Route: 048
     Dates: start: 20210802

REACTIONS (8)
  - Drug ineffective [Unknown]
  - Illness [Unknown]
  - Vomiting [Unknown]
  - Dizziness [Unknown]
  - Eye contusion [Unknown]
  - Eyelid rash [Unknown]
  - Ocular hyperaemia [Unknown]
  - Eye inflammation [Unknown]

NARRATIVE: CASE EVENT DATE: 20210801
